FAERS Safety Report 16625604 (Version 1)
Quarter: 2019Q3

REPORT INFORMATION
  Report Type: Spontaneous
  Country: US (occurrence: US)
  Receive Date: 20190724
  Receipt Date: 20190724
  Transmission Date: 20191004
  Serious: Yes (Other)
  Sender: FDA-Public Use
  Company Number: US-MYLANLABS-2019M1054328

PATIENT
  Sex: Male
  Weight: 82.33 kg

DRUGS (1)
  1. GLATIRAMER ACETATE INJECTION [Suspect]
     Active Substance: GLATIRAMER ACETATE
     Indication: RELAPSING-REMITTING MULTIPLE SCLEROSIS
     Dosage: 20 MILLIGRAM, 3XW
     Route: 058

REACTIONS (5)
  - Injection site bruising [Unknown]
  - Drug ineffective [Unknown]
  - Injection site pain [Unknown]
  - Abdominal pain upper [Unknown]
  - Drug administered in wrong device [Unknown]
